FAERS Safety Report 10216872 (Version 1)
Quarter: 2014Q2

REPORT INFORMATION
  Report Type: Spontaneous
  Country: FR (occurrence: FR)
  Receive Date: 20140604
  Receipt Date: 20140604
  Transmission Date: 20141212
  Serious: Yes (Hospitalization)
  Sender: FDA-Public Use
  Company Number: FR-ELI_LILLY_AND_COMPANY-FR201405008669

PATIENT
  Age: 86 Year
  Sex: Female

DRUGS (6)
  1. FORSTEO [Suspect]
     Indication: PRODUCT USED FOR UNKNOWN INDICATION
     Dosage: 20 UG, QD
     Route: 058
     Dates: start: 201404, end: 201405
  2. KARDEGIC [Concomitant]
     Dosage: UNK
  3. LIPANTHYL [Concomitant]
     Dosage: UNK
  4. TENSTATEN [Concomitant]
     Dosage: UNK
  5. APROVEL [Concomitant]
     Dosage: UNK
  6. OROCAL [Concomitant]
     Dosage: UNK

REACTIONS (1)
  - Epilepsy [Unknown]
